FAERS Safety Report 8588170-5 (Version None)
Quarter: 2012Q3

REPORT INFORMATION
  Report Type: 
  Country: None (occurrence: None)
  Receive Date: 20120731
  Receipt Date: 20120720
  Transmission Date: 20120928
  Serious: Yes (Other)
  Sender: FDA-Public Use
  Company Number: ADR-2012-00661

PATIENT
  Sex: Male

DRUGS (3)
  1. LIORESAL [Suspect]
     Indication: SPINAL CORD DISORDER
  2. LIORESAL [Suspect]
     Indication: MUSCLE SPASTICITY
  3. LIORESAL [Suspect]
     Indication: SPINAL CORD INJURY

REACTIONS (8)
  - HYPERTENSION [None]
  - PRURITUS [None]
  - MUSCLE SPASTICITY [None]
  - CONDITION AGGRAVATED [None]
  - DEVICE KINK [None]
  - THERAPEUTIC RESPONSE DECREASED [None]
  - MUSCLE SPASMS [None]
  - DEVICE POWER SOURCE ISSUE [None]
